FAERS Safety Report 23634338 (Version 1)
Quarter: 2024Q1

REPORT INFORMATION
  Report Type: Spontaneous
  Country: US (occurrence: US)
  Receive Date: 20240314
  Receipt Date: 20240314
  Transmission Date: 20240409
  Serious: No
  Sender: FDA-Public Use
  Company Number: US-PRINSTON PHARMACEUTICAL INC.-2023PRN00164

PATIENT
  Sex: Male

DRUGS (3)
  1. VALSARTAN AND HYDROCHLOROTHIAZIDE [Suspect]
     Active Substance: HYDROCHLOROTHIAZIDE\VALSARTAN
     Indication: Blood pressure management
     Dosage: UNK
     Dates: start: 20230417
  2. AMLODIPINE [Suspect]
     Active Substance: AMLODIPINE BESYLATE
  3. METOPROLOL [Suspect]
     Active Substance: METOPROLOL
     Dosage: UNK

REACTIONS (4)
  - Therapeutic response increased [Unknown]
  - Hypotension [Not Recovered/Not Resolved]
  - Unevaluable event [Unknown]
  - Manufacturing materials issue [Unknown]

NARRATIVE: CASE EVENT DATE: 20230101
